FAERS Safety Report 23171478 (Version 4)
Quarter: 2024Q2

REPORT INFORMATION
  Report Type: Spontaneous
  Country: US (occurrence: US)
  Receive Date: 20231110
  Receipt Date: 20240416
  Transmission Date: 20240716
  Serious: No
  Sender: FDA-Public Use
  Company Number: US-SA-SAC20231107000805

PATIENT
  Age: 79 Year
  Sex: Female

DRUGS (3)
  1. DUPIXENT [Suspect]
     Active Substance: DUPILUMAB
     Indication: Dermatitis atopic
     Dosage: UNK UNK, 1X
     Route: 058
     Dates: start: 20231016, end: 20231016
  2. DUPIXENT [Suspect]
     Active Substance: DUPILUMAB
     Indication: Rash
     Dosage: 300 MG, QOW
     Route: 058
     Dates: start: 2023
  3. DUPIXENT [Suspect]
     Active Substance: DUPILUMAB
     Indication: Allergy to chemicals

REACTIONS (5)
  - Injection site erythema [Not Recovered/Not Resolved]
  - Injection site bruising [Unknown]
  - Product preparation error [Unknown]
  - Lack of injection site rotation [Unknown]
  - Off label use [Unknown]

NARRATIVE: CASE EVENT DATE: 20231016
